FAERS Safety Report 23257255 (Version 2)
Quarter: 2024Q1

REPORT INFORMATION
  Report Type: Report from Study
  Country: ZA (occurrence: ZA)
  Receive Date: 20231204
  Receipt Date: 20240326
  Transmission Date: 20240410
  Serious: Yes (Other)
  Sender: FDA-Public Use
  Company Number: ZA-TAKEDA-2022TUS070614

PATIENT
  Sex: Female

DRUGS (4)
  1. VEDOLIZUMAB [Suspect]
     Active Substance: VEDOLIZUMAB
     Indication: Colitis ulcerative
     Dosage: 300 MILLIGRAM
     Route: 042
     Dates: start: 20210511, end: 20240318
  2. AZATHIOPRINE [Concomitant]
     Active Substance: AZATHIOPRINE
     Dosage: 50 MILLIGRAM
     Dates: start: 20171108
  3. AZATHIOPRINE [Concomitant]
     Active Substance: AZATHIOPRINE
     Dosage: 100 MILLIGRAM
  4. MESALAMINE [Concomitant]
     Active Substance: MESALAMINE
     Dosage: UNK, QD
     Dates: start: 20160516

REACTIONS (5)
  - Colitis ulcerative [Unknown]
  - Hepatic enzyme increased [Unknown]
  - Pregnancy [Unknown]
  - Inappropriate schedule of product administration [Recovered/Resolved]
  - Influenza [Recovered/Resolved]
